FAERS Safety Report 5632615-7 (Version None)
Quarter: 2008Q1

REPORT INFORMATION
  Report Type: 
  Country: None (occurrence: None)
  Receive Date: 20080131
  Receipt Date: 20071211
  Transmission Date: 20080703
  Serious: No
  Sender: FDA-Public Use
  Company Number: 163-21880-07100391

PATIENT
  Age: 77 Year
  Sex: Male

DRUGS (7)
  1. REVLIMID [Suspect]
     Indication: MULTIPLE MYELOMA
     Dosage: 15, 10 MG, DAILY FOR 21 DAYS EVERY 28 DAYS, ORAL
     Route: 048
     Dates: start: 20070913, end: 20071001
  2. REVLIMID [Suspect]
     Indication: MULTIPLE MYELOMA
     Dosage: 15, 10 MG, DAILY FOR 21 DAYS EVERY 28 DAYS, ORAL
     Route: 048
     Dates: start: 20071011, end: 20071029
  3. REVLIMID [Suspect]
     Indication: MULTIPLE MYELOMA
     Dosage: 15, 10 MG, DAILY FOR 21 DAYS EVERY 28 DAYS, ORAL
     Route: 048
     Dates: start: 20071203
  4. MULTIVITAMIN [Suspect]
     Indication: DRUG USE FOR UNKNOWN INDICATION
  5. PRILOSEC [Suspect]
     Indication: DRUG USE FOR UNKNOWN INDICATION
  6. ARANESP [Concomitant]
  7. WARFARIN SODIUM [Concomitant]

REACTIONS (7)
  - ANOREXIA [None]
  - ASTHENIA [None]
  - FATIGUE [None]
  - NEUTROPENIA [None]
  - RED BLOOD CELL COUNT DECREASED [None]
  - THROMBOCYTOPENIA [None]
  - WEIGHT DECREASED [None]
